FAERS Safety Report 15857941 (Version 1)
Quarter: 2019Q1

REPORT INFORMATION
  Report Type: Spontaneous
  Country: US (occurrence: US)
  Receive Date: 20190123
  Receipt Date: 20190123
  Transmission Date: 20190417
  Serious: Yes (Life-Threatening, Hospitalization, Disabling, Other)
  Sender: FDA-Public Use
  Company Number: None

PATIENT
  Age: 18 Year
  Sex: Female
  Weight: 65 kg

DRUGS (5)
  1. NOREPINEPHRINE. [Suspect]
     Active Substance: NOREPINEPHRINE
     Indication: SEPTIC SHOCK
     Dates: start: 20181210, end: 20181213
  2. PHENYLEPHRINE [Concomitant]
     Active Substance: PHENYLEPHRINE\PHENYLEPHRINE HYDROCHLORIDE
     Dates: start: 20181210, end: 20181210
  3. VASOPRESSIN. [Concomitant]
     Active Substance: VASOPRESSIN
     Dates: start: 20181210, end: 20181213
  4. NOREPINEPHRINE. [Suspect]
     Active Substance: NOREPINEPHRINE
     Indication: HYPOTENSION
     Dates: start: 20181210, end: 20181213
  5. PHENYLEPHRINE [Concomitant]
     Active Substance: PHENYLEPHRINE\PHENYLEPHRINE HYDROCHLORIDE
     Dates: start: 20181212, end: 20181212

REACTIONS (6)
  - Skin discolouration [None]
  - Petechiae [None]
  - Contusion [None]
  - Cyanosis [None]
  - Skin necrosis [None]
  - Peripheral ischaemia [None]

NARRATIVE: CASE EVENT DATE: 20181210
